FAERS Safety Report 14077405 (Version 5)
Quarter: 2020Q3

REPORT INFORMATION
  Report Type: Report from Study
  Country: US (occurrence: US)
  Receive Date: 20171012
  Receipt Date: 20200709
  Transmission Date: 20201102
  Serious: Yes (Hospitalization, Other)
  Sender: FDA-Public Use
  Company Number: US-ROCHE-1990966

PATIENT
  Age: 57 Year
  Sex: Female
  Weight: 61.2 kg

DRUGS (6)
  1. TRASTUZUMAB EMTANSINE [Suspect]
     Active Substance: ADO-TRASTUZUMAB EMTANSINE
     Route: 065
     Dates: start: 20170130
  2. TRASTUZUMAB EMTANSINE [Suspect]
     Active Substance: ADO-TRASTUZUMAB EMTANSINE
     Dosage: SUBSEQUENTY 220 MG
     Route: 065
     Dates: start: 20170410
  3. TRASTUZUMAB EMTANSINE [Suspect]
     Active Substance: ADO-TRASTUZUMAB EMTANSINE
     Route: 065
     Dates: start: 20170612
  4. TRASTUZUMAB EMTANSINE [Suspect]
     Active Substance: ADO-TRASTUZUMAB EMTANSINE
     Indication: NEOPLASM
     Dosage: OVER 30?90 MINUTES ON DAY 1?MOST RECENT DOSE PRIOR TO SAE? 05/JUL/2017
     Route: 042
     Dates: start: 20170109, end: 20170724
  5. TRASTUZUMAB EMTANSINE [Suspect]
     Active Substance: ADO-TRASTUZUMAB EMTANSINE
     Route: 065
     Dates: start: 20170501
  6. TRASTUZUMAB EMTANSINE [Suspect]
     Active Substance: ADO-TRASTUZUMAB EMTANSINE
     Route: 065
     Dates: start: 20170522

REACTIONS (8)
  - Abdominal pain [Recovering/Resolving]
  - Urinary tract infection [Recovering/Resolving]
  - Lower gastrointestinal haemorrhage [Not Recovered/Not Resolved]
  - Nausea [Recovering/Resolving]
  - Platelet count decreased [Unknown]
  - Pyrexia [Recovering/Resolving]
  - Small intestinal obstruction [Unknown]
  - Anaemia [Recovering/Resolving]

NARRATIVE: CASE EVENT DATE: 20170202
